FAERS Safety Report 5300703-0 (Version None)
Quarter: 2007Q2

REPORT INFORMATION
  Report Type: 
  Country: None (occurrence: None)
  Receive Date: 20070418
  Receipt Date: 20070409
  Transmission Date: 20071010
  Serious: Yes (Hospitalization)
  Sender: FDA-Public Use
  Company Number: JP-BAXTER-2007BH000665

PATIENT
  Age: 56 Year
  Sex: Male
  Weight: 75 kg

DRUGS (27)
  1. EXTRANEAL [Suspect]
     Indication: RENAL FAILURE CHRONIC
     Route: 033
     Dates: start: 20030828, end: 20050113
  2. DIANEAL [Suspect]
     Indication: RENAL FAILURE CHRONIC
     Route: 033
     Dates: start: 19990305, end: 19990525
  3. DIANEAL [Suspect]
     Route: 033
     Dates: start: 19990526, end: 19990817
  4. DIANEAL [Suspect]
     Route: 033
     Dates: start: 19990817, end: 19991109
  5. DIANEAL [Suspect]
     Route: 033
     Dates: start: 19991110, end: 20000201
  6. DIANEAL [Suspect]
     Route: 033
     Dates: start: 19991110, end: 20000201
  7. DIANEAL [Suspect]
     Route: 033
     Dates: start: 20000202, end: 20000328
  8. DIANEAL [Suspect]
     Route: 033
     Dates: start: 20000329, end: 20000514
  9. DIANEAL [Suspect]
     Route: 033
     Dates: start: 20000515, end: 20021106
  10. DIANEAL [Suspect]
     Route: 033
     Dates: start: 20021107, end: 20021204
  11. DIANEAL [Suspect]
     Route: 033
     Dates: start: 20021205, end: 20030403
  12. DIANEAL [Suspect]
     Route: 033
     Dates: start: 20020404, end: 20030827
  13. DIANEAL [Suspect]
     Route: 033
     Dates: start: 20030828, end: 20050113
  14. ISOSORBIDE MONONITRATE [Concomitant]
     Indication: DRUG USE FOR UNKNOWN INDICATION
     Route: 048
     Dates: start: 20030901
  15. POTASSIUM CHLORIDE [Concomitant]
     Indication: DRUG USE FOR UNKNOWN INDICATION
     Route: 048
     Dates: start: 20030901
  16. REBAMIPIDE [Concomitant]
     Indication: DRUG USE FOR UNKNOWN INDICATION
     Route: 048
     Dates: start: 20030901
  17. NICORANDIL [Concomitant]
     Indication: DRUG USE FOR UNKNOWN INDICATION
     Route: 048
     Dates: start: 20030901
  18. ZONISAMIDE [Concomitant]
     Indication: DRUG USE FOR UNKNOWN INDICATION
     Route: 048
     Dates: start: 20030901
  19. ALLOPURINOL [Concomitant]
     Indication: DRUG USE FOR UNKNOWN INDICATION
     Route: 048
     Dates: start: 20030901
  20. ASPIRIN [Concomitant]
     Indication: DRUG USE FOR UNKNOWN INDICATION
     Route: 048
     Dates: start: 20030901
  21. FALECALCITRIOL [Concomitant]
     Indication: DRUG USE FOR UNKNOWN INDICATION
     Route: 048
     Dates: start: 20030901
  22. SENNA LEAF [Concomitant]
     Indication: DRUG USE FOR UNKNOWN INDICATION
     Route: 048
     Dates: start: 20030901
  23. SENNOSIDE [Concomitant]
     Indication: DRUG USE FOR UNKNOWN INDICATION
     Route: 048
     Dates: start: 20030901
  24. RILMAZAFONE [Concomitant]
     Indication: DRUG USE FOR UNKNOWN INDICATION
     Route: 048
     Dates: start: 20030901
  25. FELODIPINE [Concomitant]
     Indication: DRUG USE FOR UNKNOWN INDICATION
     Route: 048
     Dates: start: 20030901
  26. EPOETIN BETA [Concomitant]
     Indication: DRUG USE FOR UNKNOWN INDICATION
     Route: 058
     Dates: start: 20031218, end: 20031218
  27. EPOETIN BETA [Concomitant]
     Route: 058
     Dates: start: 20031218

REACTIONS (2)
  - CELLULITIS [None]
  - SCLEROSING ENCAPSULATING PERITONITIS [None]
